FAERS Safety Report 22654501 (Version 1)
Quarter: 2023Q2

REPORT INFORMATION
  Report Type: Spontaneous
  Country: JP (occurrence: JP)
  Receive Date: 20230629
  Receipt Date: 20230629
  Transmission Date: 20230722
  Serious: Yes (Other)
  Sender: FDA-Public Use
  Company Number: JP-VIATRISJAPAN-2023M1066071AA

PATIENT
  Age: 78 Year

DRUGS (3)
  1. SOLANAX [Interacting]
     Active Substance: ALPRAZOLAM
     Indication: Insomnia
     Dosage: 0.4 MILLIGRAM, BID (MORNING AND NIGHT)
     Route: 048
  2. ETIZOLAM [Interacting]
     Active Substance: ETIZOLAM
     Indication: Insomnia
     Dosage: 0.5 MILLIGRAM, TID (MORNING, NOON AND NIGHT)
     Route: 048
  3. BROTIZOLAM [Interacting]
     Active Substance: BROTIZOLAM
     Indication: Insomnia
     Dosage: UNK
     Route: 048

REACTIONS (3)
  - Cerebral infarction [Unknown]
  - Tinnitus [Unknown]
  - Drug interaction [Unknown]
